FAERS Safety Report 20036561 (Version 1)
Quarter: 2021Q4

REPORT INFORMATION
  Report Type: Spontaneous
  Country: US (occurrence: US)
  Receive Date: 20211105
  Receipt Date: 20211105
  Transmission Date: 20220304
  Serious: Yes (Other)
  Sender: FDA-Public Use
  Company Number: US-CURIUM-2021000734

PATIENT
  Age: 69 Year
  Sex: Female

DRUGS (1)
  1. SODIUM IODIDE I-131 [Suspect]
     Active Substance: SODIUM IODIDE I-131
     Route: 065

REACTIONS (3)
  - Metastases to pituitary gland [Unknown]
  - Hypopituitarism [Unknown]
  - Treatment failure [Unknown]
